FAERS Safety Report 7021367-4 (Version None)
Quarter: 2010Q3

REPORT INFORMATION
  Report Type: 
  Country: None (occurrence: None)
  Receive Date: 20100929
  Receipt Date: 20100917
  Transmission Date: 20110219
  Serious: No
  Sender: FDA-Public Use
  Company Number: US-PFIZER INC-2010118946

PATIENT
  Sex: Female
  Weight: 90.703 kg

DRUGS (4)
  1. LIPITOR [Suspect]
     Indication: BLOOD CHOLESTEROL INCREASED
     Dosage: 80 MG, 1X/DAY
     Route: 048
     Dates: start: 19950101
  2. LIPITOR [Suspect]
     Dosage: UNK
     Route: 048
  3. COZAAR [Concomitant]
     Indication: HYPERTENSION
     Dosage: UNK
  4. HYDROCHLOROTHIAZIDE [Concomitant]
     Indication: HYPERTENSION
     Dosage: UNK

REACTIONS (4)
  - ADVERSE EVENT [None]
  - ARTHRALGIA [None]
  - ARTHRITIS [None]
  - MYALGIA [None]
